FAERS Safety Report 7150399-0 (Version None)
Quarter: 2010Q4

REPORT INFORMATION
  Report Type: 
  Country: None (occurrence: None)
  Receive Date: 20101210
  Receipt Date: 20101129
  Transmission Date: 20110411
  Serious: Yes (Other)
  Sender: FDA-Public Use
  Company Number: PHHY2010JP78748

PATIENT
  Sex: Female

DRUGS (2)
  1. ZOMETA [Suspect]
     Indication: METASTASES TO BONE
     Dosage: UNK
     Route: 041
  2. PACLITAXEL [Concomitant]
     Route: 042

REACTIONS (7)
  - BONE DISORDER [None]
  - BREATH ODOUR [None]
  - DYSPHAGIA [None]
  - LOOSE TOOTH [None]
  - OSTEONECROSIS OF JAW [None]
  - TOOTH EXTRACTION [None]
  - TOOTH LOSS [None]
